FAERS Safety Report 7486422-3 (Version None)
Quarter: 2011Q2

REPORT INFORMATION
  Report Type: 
  Country: None (occurrence: None)
  Receive Date: 20110516
  Receipt Date: 20110516
  Transmission Date: 20111010
  Serious: Yes (Life-Threatening, Hospitalization)
  Sender: FDA-Public Use
  Company Number: None

PATIENT
  Age: 45 Year
  Sex: Female
  Weight: 85.2762 kg

DRUGS (2)
  1. WELLBUTRIN [Suspect]
     Indication: DEPRESSION
     Dosage: ZOLOFT 50MG EVERY NIGHT PO 01
     Route: 048
     Dates: start: 20100901, end: 20110404
  2. STRATTERA [Suspect]
     Indication: ATTENTION DEFICIT/HYPERACTIVITY DISORDER
     Dosage: ZOLOFT 50MG EVERY NIGHT PO
     Route: 048

REACTIONS (8)
  - PNEUMONIA ASPIRATION [None]
  - CONVULSION [None]
  - TONGUE DISCOLOURATION [None]
  - LOSS OF CONSCIOUSNESS [None]
  - PAIN [None]
  - FALL [None]
  - TONGUE DISORDER [None]
  - CERVICAL VERTEBRAL FRACTURE [None]
